FAERS Safety Report 24621079 (Version 1)
Quarter: 2024Q4

REPORT INFORMATION
  Report Type: Spontaneous
  Country: US (occurrence: US)
  Receive Date: 20241114
  Receipt Date: 20241114
  Transmission Date: 20250115
  Serious: Yes (Death, Hospitalization, Other)
  Sender: INCYTE
  Company Number: US-EVENT-000471

PATIENT

DRUGS (2)
  1. JAKAFI [Suspect]
     Active Substance: RUXOLITINIB
     Dosage: 10 MILLIGRAM, BID
     Route: 048
     Dates: start: 20240730, end: 20240821
  2. FEDRATINIB [Suspect]
     Active Substance: FEDRATINIB
     Indication: Product used for unknown indication
     Dosage: UNK
     Route: 065

REACTIONS (6)
  - Diarrhoea [Fatal]
  - Staphylococcal sepsis [Fatal]
  - Clostridial sepsis [Fatal]
  - Failure to thrive [Unknown]
  - Staphylococcus test positive [Unknown]
  - Clostridium test positive [Unknown]

NARRATIVE: CASE EVENT DATE: 20240917
